FAERS Safety Report 10584049 (Version 1)
Quarter: 2014Q4

REPORT INFORMATION
  Report Type: Spontaneous
  Country: ES (occurrence: None)
  Receive Date: 20141112
  Receipt Date: 20141112
  Transmission Date: 20150529
  Serious: Yes (Hospitalization, Other)
  Sender: FDA-Public Use
  Company Number: ES-ZYDUS-005316

PATIENT
  Age: 43 Year
  Sex: Male

DRUGS (2)
  1. AMOXICILILN W/CLAVULANATE POTASSIUM(AMOXICILLIN W. CLAVULANATE POTASSIUM) [Concomitant]
  2. SIMVASTATIN(SIMVASTATIN) [Suspect]
     Active Substance: SIMVASTATIN

REACTIONS (3)
  - Toxic skin eruption [None]
  - Pruritus [None]
  - Erythema [None]
